FAERS Safety Report 4928490-6 (Version None)
Quarter: 2006Q1

REPORT INFORMATION
  Report Type: 
  Country: None (occurrence: None)
  Receive Date: 20060223
  Receipt Date: 20060207
  Transmission Date: 20060701
  Serious: Yes (Hospitalization)
  Sender: FDA-Public Use
  Company Number: 2006EU000365

PATIENT
  Age: 70 Year
  Sex: Male

DRUGS (10)
  1. FK506 (TACROLIMUS CAPSULES) [Suspect]
     Indication: RENAL TRANSPLANT
     Dosage: 1.5 MG, UID/QD, ORAL
     Route: 048
     Dates: start: 20040212
  2. DACLIZUMAB(DACLIZUMAB) [Suspect]
     Indication: RENAL TRANSPLANT
     Dosage: 165 MG, D, IV NOS
     Route: 042
     Dates: start: 20031111, end: 20040109
  3. MYCOPHENOLATE MOFETIL(MYCOPHENOLATE MOFETIL) [Suspect]
     Indication: RENAL TRANSPLANT
     Dosage: 1000 MG, D, ORAL
     Route: 047
     Dates: start: 20031111
  4. SIROLIMUS [Suspect]
     Indication: RENAL TRANSPLANT
     Dosage: 3 MG, UID/QD, ORAL
     Route: 048
     Dates: start: 20031112, end: 20040126
  5. VALGANCICLOVIR(VALGANCICLOVIR) [Suspect]
     Indication: RENAL TRANSPLANT
     Dosage: 450 MG, D, ORAL
     Route: 048
     Dates: start: 20040113, end: 20040315
  6. PREDNISONE TAB [Suspect]
     Indication: RENAL TRANSPLANT
     Dosage: 15 MG, UID/QD, ORAL
     Route: 048
     Dates: start: 20031113
  7. OMEPRAZOLE [Concomitant]
  8. DIAZEPAM [Concomitant]
  9. ERYTHROPOIETIN (ERYTHROPOIETIN) [Concomitant]
  10. AMLODIPINE [Concomitant]

REACTIONS (10)
  - BACTERIAL PYELONEPHRITIS [None]
  - BONE MARROW TOXICITY [None]
  - CYTOMEGALOVIRUS INFECTION [None]
  - ESCHERICHIA INFECTION [None]
  - HAEMODIALYSIS [None]
  - RENAL HAEMORRHAGE [None]
  - RENAL TUBULAR NECROSIS [None]
  - RENAL VESSEL DISORDER [None]
  - THROMBOSIS [None]
  - THROMBOTIC MICROANGIOPATHY [None]
